FAERS Safety Report 7484864-3 (Version None)
Quarter: 2011Q2

REPORT INFORMATION
  Report Type: 
  Country: None (occurrence: None)
  Receive Date: 20110517
  Receipt Date: 20110510
  Transmission Date: 20111010
  Serious: Yes (Hospitalization)
  Sender: FDA-Public Use
  Company Number: A0790854A

PATIENT
  Age: 59 Year
  Sex: Female

DRUGS (14)
  1. DOXEPIN [Concomitant]
  2. SYNTHROID [Concomitant]
  3. ULTRAM [Concomitant]
  4. LEVEMIR [Concomitant]
  5. PERCOCET [Concomitant]
  6. LYRICA [Concomitant]
  7. PROZAC [Concomitant]
  8. EFFEXOR [Concomitant]
  9. LIPITOR [Concomitant]
  10. AVANDIA [Suspect]
     Dosage: 8MG PER DAY
     Route: 048
  11. AVANDAMET [Suspect]
     Route: 065
  12. GLIPIZIDE [Concomitant]
  13. ASPIRIN [Concomitant]
  14. MIRAPEX [Concomitant]

REACTIONS (2)
  - CARDIAC FAILURE CONGESTIVE [None]
  - PLEURAL EFFUSION [None]
